FAERS Safety Report 7702846-0 (Version None)
Quarter: 2011Q3

REPORT INFORMATION
  Report Type: 
  Country: None (occurrence: None)
  Receive Date: 20110823
  Receipt Date: 20110816
  Transmission Date: 20111222
  Serious: Yes (Other)
  Sender: FDA-Public Use
  Company Number: CA-JNJFOC-20110804036

PATIENT
  Sex: Female
  Weight: 75 kg

DRUGS (3)
  1. METHOTREXATE [Concomitant]
  2. REMICADE [Suspect]
     Indication: PSORIATIC ARTHROPATHY
     Route: 042
     Dates: start: 20080804
  3. REMICADE [Suspect]
     Route: 042
     Dates: start: 20110428

REACTIONS (2)
  - HEADACHE [None]
  - INTERVERTEBRAL DISC PROTRUSION [None]
